FAERS Safety Report 8346392-2 (Version None)
Quarter: 2012Q2

REPORT INFORMATION
  Report Type: 
  Country: None (occurrence: None)
  Receive Date: 20120507
  Receipt Date: 20120507
  Transmission Date: 20120825
  Serious: Yes (Hospitalization)
  Sender: FDA-Public Use
  Company Number: None

PATIENT
  Age: 82 Year
  Sex: Male
  Weight: 80 kg

DRUGS (2)
  1. NILUTAMIDE 300MG [Suspect]
     Indication: PROSTATE CANCER METASTATIC
     Dosage: 300MG DAILY PO
     Route: 048
     Dates: start: 20120323, end: 20120424
  2. SIMVASTATIN [Suspect]
     Indication: DYSLIPIDAEMIA
     Dosage: 10MG HS PO
     Route: 048
     Dates: end: 20120424

REACTIONS (7)
  - VOMITING [None]
  - PORTAL VEIN THROMBOSIS [None]
  - DRUG-INDUCED LIVER INJURY [None]
  - HEPATITIS VIRAL [None]
  - HYPOTENSION [None]
  - FATIGUE [None]
  - NAUSEA [None]
